FAERS Safety Report 10946973 (Version 1)
Quarter: 2015Q1

REPORT INFORMATION
  Report Type: Report from Study
  Country: FR (occurrence: FR)
  Receive Date: 20150323
  Receipt Date: 20150323
  Transmission Date: 20150721
  Serious: Yes (Hospitalization)
  Sender: FDA-Public Use
  Company Number: FR-PFIZER INC-2015092090

PATIENT
  Age: 31 Year
  Sex: Female

DRUGS (8)
  1. BLINDED SUNITINIB MALATE [Suspect]
     Active Substance: SUNITINIB MALATE
     Dosage: 25 MG, 1X/DAY
     Dates: start: 20140528
  2. PLACEBO [Suspect]
     Active Substance: UNSPECIFIED INGREDIENT
     Indication: PHAEOCHROMOCYTOMA
     Dosage: 37.5 MG, 1X/DAY
     Dates: start: 20140528
  3. BLINDED SUNITINIB MALATE [Suspect]
     Active Substance: SUNITINIB MALATE
     Indication: PHAEOCHROMOCYTOMA
     Dosage: 37.5 MG, 1X/DAY
     Dates: start: 20140528
  4. BLINDED SUNITINIB MALATE [Suspect]
     Active Substance: SUNITINIB MALATE
     Indication: PHAEOCHROMOCYTOMA
     Dosage: 37.5 MG, 1X/DAY
     Dates: start: 20140528
  5. BLINDED SUNITINIB MALATE [Suspect]
     Active Substance: SUNITINIB MALATE
     Dosage: 25 MG, 1X/DAY
     Dates: start: 20140528
  6. PLACEBO [Suspect]
     Active Substance: UNSPECIFIED INGREDIENT
     Dosage: 25 MG, 1X/DAY
     Dates: start: 20140528
  7. PLACEBO [Suspect]
     Active Substance: UNSPECIFIED INGREDIENT
     Indication: PHAEOCHROMOCYTOMA
     Dosage: 37.5 MG, 1X/DAY
     Dates: start: 20140528
  8. PLACEBO [Suspect]
     Active Substance: UNSPECIFIED INGREDIENT
     Dosage: 25 MG, 1X/DAY
     Dates: start: 20140528

REACTIONS (2)
  - Monoparesis [Not Recovered/Not Resolved]
  - Subileus [Not Recovered/Not Resolved]

NARRATIVE: CASE EVENT DATE: 20150223
